FAERS Safety Report 10222495 (Version 2)
Quarter: 2014Q3

REPORT INFORMATION
  Report Type: Report from Study
  Country: US (occurrence: US)
  Receive Date: 20140606
  Receipt Date: 20140725
  Transmission Date: 20150326
  Serious: Yes (Hospitalization)
  Sender: FDA-Public Use
  Company Number: US-JNJFOC-20140600913

PATIENT
  Age: 36 Year
  Sex: Male
  Weight: 61.5 kg

DRUGS (2)
  1. ETHANOL [Suspect]
     Active Substance: ALCOHOL
     Indication: PRODUCT USED FOR UNKNOWN INDICATION
     Route: 065
  2. TYLENOL PM [Suspect]
     Active Substance: ACETAMINOPHEN\DIPHENHYDRAMINE
     Indication: INSOMNIA
     Dosage: DOSAGE: 4 MAYBE 5
     Route: 065

REACTIONS (7)
  - Aspartate aminotransferase increased [Unknown]
  - Off label use [Unknown]
  - Thrombocytopenia [Unknown]
  - Prothrombin time prolonged [Unknown]
  - Blood bilirubin increased [Unknown]
  - Blood creatinine increased [Unknown]
  - Alanine aminotransferase increased [Unknown]
